FAERS Safety Report 9131320 (Version 4)
Quarter: 2013Q2

REPORT INFORMATION
  Report Type: Report from Study
  Country: US (occurrence: US)
  Receive Date: 20130301
  Receipt Date: 20130402
  Transmission Date: 20140414
  Serious: Yes (Hospitalization)
  Sender: FDA-Public Use
  Company Number: US-JNJFOC-20130214688

PATIENT
  Age: 14 Year
  Sex: Female
  Weight: 41 kg

DRUGS (17)
  1. REMICADE [Suspect]
     Indication: CROHN^S DISEASE
     Route: 042
  2. REMICADE [Suspect]
     Indication: CROHN^S DISEASE
     Route: 042
     Dates: start: 20120130
  3. PREDNISONE [Concomitant]
     Route: 065
  4. 5-ASA [Concomitant]
     Route: 048
  5. PANTOPRAZOLE [Concomitant]
     Route: 065
  6. HYOSCYAMINE SULFATE [Concomitant]
     Route: 065
  7. 6-MERCAPTOPURINE [Concomitant]
     Route: 065
  8. TYLENOL [Concomitant]
     Route: 065
  9. CHOLECALCIFEROL [Concomitant]
     Route: 065
  10. TRIAMCINOLONE ACETONIDE [Concomitant]
     Route: 065
  11. KETOCONAZOLE [Concomitant]
     Route: 065
  12. ONDANSETRON [Concomitant]
     Route: 065
  13. ANTIBIOTICS [Concomitant]
     Indication: INFLAMMATORY BOWEL DISEASE
     Route: 065
  14. 5-ASA [Concomitant]
     Route: 054
  15. ERYTHROMYCIN [Concomitant]
     Route: 065
  16. ACYCLOVIR [Concomitant]
     Route: 065
  17. PERCOCET [Concomitant]
     Route: 065

REACTIONS (1)
  - Weight decreased [Recovered/Resolved]
